FAERS Safety Report 20706423 (Version 1)
Quarter: 2022Q2

REPORT INFORMATION
  Report Type: Spontaneous
  Country: US (occurrence: None)
  Receive Date: 20220413
  Receipt Date: 20220413
  Transmission Date: 20220721
  Serious: Yes (Disabling, Other)
  Sender: FDA-Public Use
  Company Number: None

PATIENT
  Age: 25 Year
  Sex: Female
  Weight: 101.25 kg

DRUGS (3)
  1. AZITHROMYCIN [Suspect]
     Active Substance: AZITHROMYCIN
     Indication: Bartonellosis
     Dosage: FREQUENCY : DAILY;?
     Route: 042
     Dates: start: 20200908, end: 20220411
  2. DOXYCYCLINE [Concomitant]
     Active Substance: DOXYCYCLINE
     Dates: start: 20200908
  3. RIFAMPIN [Concomitant]
     Active Substance: RIFAMPIN
     Dates: start: 20200908

REACTIONS (2)
  - Deafness [None]
  - Therapy cessation [None]

NARRATIVE: CASE EVENT DATE: 20220411
